FAERS Safety Report 12240485 (Version 1)
Quarter: 2016Q2

REPORT INFORMATION
  Report Type: Spontaneous
  Country: DE (occurrence: DE)
  Receive Date: 20160405
  Receipt Date: 20160405
  Transmission Date: 20160815
  Serious: Yes (Other)
  Sender: FDA-Public Use
  Company Number: DE-ALLERGAN-1652682US

PATIENT
  Age: 66 Year
  Sex: Male

DRUGS (2)
  1. BOTULINUM TOXIN TYPE A UNK [Suspect]
     Active Substance: BOTULINUM TOXIN TYPE A
     Indication: SALIVARY GLAND DISORDER
     Dosage: 15 UNITS, SINGLE
     Route: 030
  2. NACL [Concomitant]
     Active Substance: SODIUM CHLORIDE
     Indication: SALIVARY GLAND DISORDER
     Route: 030

REACTIONS (4)
  - Off label use [Unknown]
  - Stomatitis [Unknown]
  - Radiation skin injury [Unknown]
  - Oropharyngeal cancer [Unknown]
